FAERS Safety Report 7801743-X (Version None)
Quarter: 2011Q4

REPORT INFORMATION
  Report Type: 
  Country: None (occurrence: None)
  Receive Date: 20111007
  Receipt Date: 20110928
  Transmission Date: 20120403
  Serious: Yes (Other)
  Sender: FDA-Public Use
  Company Number: US-GENZYME-CERZ-1002244

PATIENT

DRUGS (6)
  1. JANTOVEN [Concomitant]
     Indication: ANTICOAGULANT THERAPY
     Dosage: UNK
     Route: 048
     Dates: start: 20110606
  2. PACERONE [Concomitant]
     Indication: PRODUCT USED FOR UNKNOWN INDICATION
     Dosage: 400 MG, QD
     Dates: start: 20110706
  3. TAZTIA XT [Concomitant]
     Indication: PRODUCT USED FOR UNKNOWN INDICATION
     Dosage: 180 MG, QD
     Route: 048
     Dates: start: 20110616
  4. HYTRIN [Concomitant]
     Indication: PRODUCT USED FOR UNKNOWN INDICATION
     Dosage: 2 MG, QD
     Route: 048
     Dates: start: 20101203
  5. CEREZYME [Suspect]
     Dosage: 69 U/KG, Q2W
     Route: 042
     Dates: start: 20040831, end: 20050501
  6. CEREZYME [Suspect]
     Indication: GAUCHER'S DISEASE
     Dosage: 61 U/KG, Q2W
     Route: 042
     Dates: start: 20101101

REACTIONS (3)
  - ASTHENIA [None]
  - ATRIAL FIBRILLATION [None]
  - TREMOR [None]
